FAERS Safety Report 16840079 (Version 1)
Quarter: 2019Q3

REPORT INFORMATION
  Report Type: Spontaneous
  Country: CN (occurrence: CN)
  Receive Date: 20190923
  Receipt Date: 20190923
  Transmission Date: 20191005
  Serious: Yes (Hospitalization, Other)
  Sender: FDA-Public Use
  Company Number: CN-VALIDUS PHARMACEUTICALS LLC-CN-2019VAL000537

PATIENT

DRUGS (2)
  1. CALCIUM GLUCONATE. [Concomitant]
     Active Substance: CALCIUM GLUCONATE
     Indication: PRODUCT USED FOR UNKNOWN INDICATION
     Dosage: UNK
     Dates: start: 20170803, end: 20170823
  2. ERGOCALCIFEROL. [Suspect]
     Active Substance: ERGOCALCIFEROL
     Indication: SUPPLEMENTATION THERAPY
     Dosage: 0.25 MG, TABLET CONTAINING 10,000 IU OF VITAMIN D 2/ /TABLET, 1-3 TIMES PER DAY
     Route: 048

REACTIONS (7)
  - Toxicity to various agents [Recovered/Resolved]
  - Overdose [Recovered/Resolved]
  - Hypercalcaemia [Recovered/Resolved]
  - Polyuria [Recovered/Resolved]
  - Hyperphosphataemia [Recovered/Resolved]
  - Nephrogenic diabetes insipidus [Recovered/Resolved]
  - Polydipsia [Recovered/Resolved]

NARRATIVE: CASE EVENT DATE: 2017
